FAERS Safety Report 8574309-4 (Version None)
Quarter: 2012Q3

REPORT INFORMATION
  Report Type: 
  Country: None (occurrence: None)
  Receive Date: 20120806
  Receipt Date: 20120723
  Transmission Date: 20120928
  Serious: Yes (Disabling, Other)
  Sender: FDA-Public Use
  Company Number: US-009507513-1207USA011264

PATIENT

DRUGS (39)
  1. GLUCOPHAGE [Suspect]
  2. VIAGRA [Suspect]
  3. ALLOPURINOL [Concomitant]
  4. OMEGA-3-ACID ETHYL ESTERS [Concomitant]
  5. PILOCARPINE [Concomitant]
  6. ISTALOL [Concomitant]
     Dosage: 1 DF, UNK
  7. MOTRIN [Suspect]
  8. COREG [Suspect]
  9. CLOZAPINE [Concomitant]
  10. BILBERRY [Concomitant]
  11. XALATAN [Suspect]
     Route: 047
  12. TRAMADOL HYDROCHLORIDE [Suspect]
  13. ZETIA [Suspect]
  14. TOPROL-XL [Suspect]
  15. PLAVIX [Suspect]
  16. OXYCODONE HCL [Concomitant]
  17. METFORMIN HYDROCHLORIDE [Suspect]
  18. LOTRIMIN [Suspect]
  19. ASPIRIN [Concomitant]
  20. POTASSIUM CHLORIDE [Concomitant]
  21. LUMIGAN [Concomitant]
  22. PROSCAR [Suspect]
  23. PRAVASTATIN SODIUM [Concomitant]
  24. FUROSEMIDE [Concomitant]
  25. ZOCOR [Suspect]
  26. LUVOX [Suspect]
  27. PROZAC [Suspect]
  28. RESTASIS [Suspect]
  29. METOPROLOL TARTRATE [Suspect]
  30. VICODIN [Concomitant]
  31. LOSARTAN POTASSIUM [Concomitant]
  32. DIGOXIN [Concomitant]
  33. FOLIC ACID [Concomitant]
  34. LIPITOR [Suspect]
  35. IBUPROFEN (ADVIL) [Suspect]
  36. REGLAN [Suspect]
  37. THERATEARS [Concomitant]
  38. DIAZEPAM [Concomitant]
  39. LANTUS [Concomitant]
     Dosage: 12 IU, UNK

REACTIONS (13)
  - ASTHENIA [None]
  - INSOMNIA [None]
  - BACK PAIN [None]
  - MYALGIA [None]
  - VOMITING [None]
  - BLOOD GLUCOSE INCREASED [None]
  - DRUG HYPERSENSITIVITY [None]
  - ABASIA [None]
  - SKIN IRRITATION [None]
  - CONSTIPATION [None]
  - DYSPNOEA [None]
  - NAUSEA [None]
  - FATIGUE [None]
